FAERS Safety Report 8793431 (Version 2)
Quarter: 2015Q3

REPORT INFORMATION
  Report Type: Report from Study
  Country: US (occurrence: US)
  Receive Date: 20120918
  Receipt Date: 20150702
  Transmission Date: 20151125
  Serious: Yes (Death)
  Sender: FDA-Public Use
  Company Number: US-ROCHE-1126461

PATIENT
  Sex: Male

DRUGS (17)
  1. ALOXI [Concomitant]
     Active Substance: PALONOSETRON HYDROCHLORIDE
     Route: 042
  2. INTERLEUKIN 2 [Concomitant]
     Active Substance: ALDESLEUKIN
     Route: 065
  3. GEMCITABINE [Concomitant]
     Active Substance: GEMCITABINE\GEMCITABINE HYDROCHLORIDE
  4. PROCRIT [Concomitant]
     Active Substance: ERYTHROPOIETIN
     Route: 065
  5. AVASTIN [Suspect]
     Active Substance: BEVACIZUMAB
     Indication: RENAL CANCER
     Dosage: EVERY 2 WEEKS
     Route: 042
     Dates: start: 20041116
  6. TAXOTERE [Concomitant]
     Active Substance: DOCETAXEL
     Route: 042
  7. SENOKOT [Concomitant]
     Active Substance: SENNOSIDES
  8. ZOMETA [Concomitant]
     Active Substance: ZOLEDRONIC ACID
  9. 5-FLUOROURACIL [Concomitant]
     Active Substance: FLUOROURACIL
  10. TYLENOL #2 (UNITED STATES) [Concomitant]
  11. DECADRON [Concomitant]
     Active Substance: DEXAMETHASONE
     Route: 042
  12. SANDOSTATIN [Concomitant]
     Active Substance: OCTREOTIDE ACETATE
     Route: 065
  13. AVASTIN [Suspect]
     Active Substance: BEVACIZUMAB
     Indication: METASTASES TO LUNG
  14. XELODA [Suspect]
     Active Substance: CAPECITABINE
     Indication: RENAL CANCER
     Route: 042
  15. XELODA [Suspect]
     Active Substance: CAPECITABINE
     Indication: METASTASES TO LUNG
  16. ONDASETRON [Concomitant]
     Active Substance: ONDANSETRON
     Route: 065
  17. NYSTATIN. [Concomitant]
     Active Substance: NYSTATIN

REACTIONS (37)
  - Oesophageal candidiasis [Unknown]
  - Fatigue [Recovered/Resolved]
  - Myalgia [Unknown]
  - Pruritus [Unknown]
  - Nausea [Unknown]
  - Visual impairment [Unknown]
  - Dehydration [Unknown]
  - Death [Fatal]
  - Constipation [Recovered/Resolved]
  - Tongue coated [Unknown]
  - Candida infection [Unknown]
  - Vomiting [Recovered/Resolved]
  - Pollakiuria [Unknown]
  - Tachycardia [Unknown]
  - Decreased appetite [Unknown]
  - Drug dose omission [Unknown]
  - Insomnia [Unknown]
  - Joint swelling [Unknown]
  - Seborrhoeic keratosis [Unknown]
  - Wheezing [Unknown]
  - Epistaxis [Unknown]
  - Diarrhoea [Recovered/Resolved]
  - Fluid retention [Unknown]
  - Haematuria [Unknown]
  - Abdominal discomfort [Unknown]
  - Rectal haemorrhage [Unknown]
  - Abdominal pain lower [Recovered/Resolved]
  - Productive cough [Unknown]
  - Arthralgia [Unknown]
  - Dizziness [Unknown]
  - Disease progression [Unknown]
  - Musculoskeletal chest pain [Unknown]
  - Pyrexia [Unknown]
  - Weight decreased [Unknown]
  - Gait disturbance [Unknown]
  - Skin discolouration [Unknown]
  - Off label use [Unknown]
